FAERS Safety Report 4685702-4 (Version None)
Quarter: 2005Q2

REPORT INFORMATION
  Report Type: 
  Country: None (occurrence: None)
  Receive Date: 20050608
  Receipt Date: 20050527
  Transmission Date: 20051028
  Serious: Yes (Hospitalization, Other)
  Sender: FDA-Public Use
  Company Number: 2005-04-0209

PATIENT
  Age: 69 Year
  Sex: Female

DRUGS (6)
  1. PEG-INTRON [Suspect]
     Indication: HEPATITIS C
     Dosage: 80-60 MCG QW SUBCUTANEO
     Route: 058
     Dates: start: 20050204, end: 20050225
  2. PEG-INTRON [Suspect]
     Indication: HEPATITIS C
     Dosage: 80-60 MCG QW SUBCUTANEO
     Route: 058
     Dates: start: 20050204, end: 20050401
  3. PEG-INTRON [Suspect]
     Indication: HEPATITIS C
     Dosage: 80-60 MCG QW SUBCUTANEO
     Route: 058
     Dates: start: 20050318, end: 20050401
  4. REBETOL [Suspect]
     Indication: HEPATITIS C
     Dosage: 600-200 MG* ORAL
     Route: 048
     Dates: start: 20050204, end: 20050302
  5. REBETOL [Suspect]
     Indication: HEPATITIS C
     Dosage: 600-200 MG* ORAL
     Route: 048
     Dates: start: 20050204, end: 20050402
  6. REBETOL [Suspect]
     Indication: HEPATITIS C
     Dosage: 600-200 MG* ORAL
     Route: 048
     Dates: start: 20050325, end: 20050402

REACTIONS (8)
  - CONSTIPATION [None]
  - DISSEMINATED INTRAVASCULAR COAGULATION [None]
  - DYSPEPSIA [None]
  - INTESTINAL FUNCTIONAL DISORDER [None]
  - KLEBSIELLA INFECTION [None]
  - LEUKOPENIA [None]
  - LIVER ABSCESS [None]
  - SEPSIS [None]
